FAERS Safety Report 7157741-5 (Version None)
Quarter: 2010Q4

REPORT INFORMATION
  Report Type: 
  Country: None (occurrence: None)
  Receive Date: 20101214
  Receipt Date: 20100201
  Transmission Date: 20110411
  Serious: No
  Sender: FDA-Public Use
  Company Number: US-ASTRAZENECA-2010SE04771

PATIENT
  Age: 70 Year
  Sex: Male
  Weight: 99.8 kg

DRUGS (1)
  1. CRESTOR [Suspect]
     Indication: BLOOD CHOLESTEROL INCREASED
     Route: 048
     Dates: start: 20091201, end: 20100101

REACTIONS (3)
  - DYSPNOEA [None]
  - FATIGUE [None]
  - HEADACHE [None]
